FAERS Safety Report 8996187 (Version 1)
Quarter: 2013Q1

REPORT INFORMATION
  Report Type: Spontaneous
  Country: US (occurrence: US)
  Receive Date: 20130103
  Receipt Date: 20130103
  Transmission Date: 20140127
  Serious: No
  Sender: FDA-Public Use
  Company Number: US-ASTRAZENECA-2012SE91041

PATIENT
  Age: 65 Year
  Sex: Female

DRUGS (1)
  1. FASLODEX [Suspect]
     Indication: BREAST CANCER STAGE IV
     Route: 030

REACTIONS (2)
  - Injection site reaction [Not Recovered/Not Resolved]
  - Drug ineffective [Unknown]
